FAERS Safety Report 16930259 (Version 3)
Quarter: 2019Q4

REPORT INFORMATION
  Report Type: Spontaneous
  Country: US (occurrence: US)
  Receive Date: 20191017
  Receipt Date: 20191108
  Transmission Date: 20200122
  Serious: Yes (Hospitalization)
  Sender: FDA-Public Use
  Company Number: US-JNJFOC-20191015038

PATIENT
  Age: 45 Year
  Sex: Male
  Weight: 93.9 kg

DRUGS (4)
  1. DEXAMETHASONE. [Concomitant]
     Active Substance: DEXAMETHASONE
     Indication: PLASMA CELL MYELOMA
     Route: 065
     Dates: start: 20190909
  2. DARZALEX [Suspect]
     Active Substance: DARATUMUMAB
     Route: 042
     Dates: start: 20191023
  3. DARZALEX [Suspect]
     Active Substance: DARATUMUMAB
     Indication: PLASMA CELL MYELOMA
     Dosage: 3 VIALS, 16MG/KG
     Route: 042
     Dates: start: 20190909
  4. DARZALEX [Suspect]
     Active Substance: DARATUMUMAB
     Dosage: 2 VIALS
     Route: 042
     Dates: start: 20190909

REACTIONS (2)
  - Plasma cell myeloma [Unknown]
  - Renal function test abnormal [Recovering/Resolving]

NARRATIVE: CASE EVENT DATE: 20191009
